FAERS Safety Report 21812834 (Version 1)
Quarter: 2023Q1

REPORT INFORMATION
  Report Type: Spontaneous
  Country: US (occurrence: US)
  Receive Date: 20230103
  Receipt Date: 20230103
  Transmission Date: 20230418
  Serious: No
  Sender: FDA-Public Use
  Company Number: US-FreseniusKabi-FK202218470

PATIENT
  Age: 3 Year
  Sex: Male
  Weight: 16.4 kg

DRUGS (2)
  1. ROCURONIUM BROMIDE [Suspect]
     Active Substance: ROCURONIUM BROMIDE
     Indication: Endotracheal intubation
     Dosage: CONCENTRATION: 10 MG/ML. DOSE OF 20 MG IV GIVEN (1.2 MG/KG) ON 12/27/22 AT 1334. STORED IN REFRIGERA
     Route: 042
     Dates: start: 20221227
  2. PROPOFOL [Concomitant]
     Active Substance: PROPOFOL
     Indication: Endotracheal intubation

REACTIONS (2)
  - Off label use [Unknown]
  - Drug ineffective [Unknown]

NARRATIVE: CASE EVENT DATE: 20221227
